FAERS Safety Report 11293220 (Version 1)
Quarter: 2015Q3

REPORT INFORMATION
  Report Type: Spontaneous
  Country: CA (occurrence: CA)
  Receive Date: 20150722
  Receipt Date: 20150722
  Transmission Date: 20151125
  Serious: Yes (Other)
  Sender: FDA-Public Use
  Company Number: CA-MYLANLABS-2015M1023483

PATIENT

DRUGS (1)
  1. MYLAN GALANTAMINE ER [Suspect]
     Active Substance: GALANTAMINE
     Indication: DEMENTIA ALZHEIMER^S TYPE
     Dosage: 16 MG, QD
     Route: 048

REACTIONS (2)
  - Choking [Recovered/Resolved]
  - Wrong technique in product usage process [Recovered/Resolved]
